FAERS Safety Report 12010200 (Version 1)
Quarter: 2016Q1

REPORT INFORMATION
  Report Type: Spontaneous
  Country: None (occurrence: None)
  Receive Date: 20160204
  Receipt Date: 20160204
  Transmission Date: 20160526
  Serious: No
  Sender: FDA-Public Use
  Company Number: None

PATIENT
  Age: 27 Year
  Sex: Female
  Weight: 81.65 kg

DRUGS (1)
  1. MIRENA [Suspect]
     Active Substance: LEVONORGESTREL

REACTIONS (9)
  - Acne cystic [None]
  - Anxiety [None]
  - Vaginal odour [None]
  - Breast tenderness [None]
  - Menstruation irregular [None]
  - Alopecia [None]
  - Weight increased [None]
  - Vaginal discharge [None]
  - Mood swings [None]

NARRATIVE: CASE EVENT DATE: 20160203
